FAERS Safety Report 6435433-5 (Version None)
Quarter: 2009Q4

REPORT INFORMATION
  Report Type: 
  Country: None (occurrence: None)
  Receive Date: 20091106
  Receipt Date: 20091027
  Transmission Date: 20100525
  Serious: Yes (Other)
  Sender: FDA-Public Use
  Company Number: JPI-P-008944

PATIENT
  Age: 43 Year
  Sex: Female

DRUGS (1)
  1. XYREM [Suspect]
     Indication: NARCOLEPSY
     Dosage: 9 GM (4.5 GM, 2 IN 1 D), ORAL
     Route: 048
     Dates: start: 20090420

REACTIONS (11)
  - ARTHRALGIA [None]
  - ASTHENIA [None]
  - BACK PAIN [None]
  - CONDITION AGGRAVATED [None]
  - HAEMATEMESIS [None]
  - HYPERTENSION [None]
  - INSOMNIA [None]
  - JOINT SWELLING [None]
  - PAIN IN EXTREMITY [None]
  - ULCER [None]
  - VOMITING [None]
